FAERS Safety Report 20746270 (Version 1)
Quarter: 2022Q2

REPORT INFORMATION
  Report Type: Spontaneous
  Country: US (occurrence: US)
  Receive Date: 20220425
  Receipt Date: 20220425
  Transmission Date: 20220721
  Serious: No
  Sender: FDA-Public Use
  Company Number: US-PFIZER INC-2019357385

PATIENT
  Age: 79 Year
  Sex: Male

DRUGS (1)
  1. LYRICA [Suspect]
     Active Substance: PREGABALIN
     Indication: Intervertebral disc displacement
     Dosage: 100 MG, 2X/DAY
     Route: 048

REACTIONS (3)
  - Mental disorder [Unknown]
  - Affect lability [Unknown]
  - Off label use [Unknown]

NARRATIVE: CASE EVENT DATE: 20210618
